FAERS Safety Report 7777318-8 (Version None)
Quarter: 2011Q3

REPORT INFORMATION
  Report Type: 
  Country: None (occurrence: None)
  Receive Date: 20110926
  Receipt Date: 20110920
  Transmission Date: 20111222
  Serious: Yes (Death, Hospitalization)
  Sender: FDA-Public Use
  Company Number: PHHY2011EC84002

PATIENT
  Age: 56 Year
  Sex: Female

DRUGS (1)
  1. DIOVAN [Suspect]
     Indication: HYPERTENSION
     Dosage: 1 DF DAILT (160 MG)
     Route: 048
     Dates: start: 20100811

REACTIONS (4)
  - CONDITION AGGRAVATED [None]
  - NEOPLASM MALIGNANT [None]
  - CARDIAC FAILURE [None]
  - CYSTITIS [None]
